FAERS Safety Report 20238964 (Version 4)
Quarter: 2022Q1

REPORT INFORMATION
  Report Type: Spontaneous
  Country: DE (occurrence: DE)
  Receive Date: 20211228
  Receipt Date: 20220120
  Transmission Date: 20220423
  Serious: Yes (Hospitalization, Other)
  Sender: FDA-Public Use
  Company Number: DE-NOVARTISPH-NVSC2021DE293846

PATIENT
  Age: 68 Year
  Sex: Female

DRUGS (18)
  1. HYDROCHLOROTHIAZIDE [Interacting]
     Active Substance: HYDROCHLOROTHIAZIDE
     Indication: Diuretic therapy
     Dosage: 25 MG
     Route: 048
     Dates: start: 2015
  2. RAMIPRIL [Interacting]
     Active Substance: RAMIPRIL
     Indication: Product used for unknown indication
     Dosage: 2.5 MILLIGRAM
     Route: 048
     Dates: start: 2015
  3. TORSEMIDE [Interacting]
     Active Substance: TORSEMIDE
     Indication: Diuretic therapy
     Dosage: 10 MG
     Route: 048
     Dates: start: 2015, end: 201605
  4. TORSEMIDE [Interacting]
     Active Substance: TORSEMIDE
     Dosage: 5 MG
     Route: 048
     Dates: start: 201605
  5. LITHIUM CARBONATE [Interacting]
     Active Substance: LITHIUM CARBONATE
     Indication: Antidepressant therapy
     Dosage: 450 MG/12.2MMOL, QD, IT WAS REINITIATED IN A DOSE OF 450 MG/D
     Route: 048
  6. LITHIUM CARBONATE [Interacting]
     Active Substance: LITHIUM CARBONATE
     Indication: Depression
  7. ASPIRIN [Concomitant]
     Active Substance: ASPIRIN
     Indication: Product used for unknown indication
     Dosage: 100 MG, UNKNOWN
     Route: 048
  8. LEVOTHYROXINE [Concomitant]
     Active Substance: LEVOTHYROXINE
     Indication: Product used for unknown indication
     Dosage: 25 UG, UNKNOWN
     Route: 048
  9. METOPROLOL [Concomitant]
     Active Substance: METOPROLOL
     Indication: Product used for unknown indication
     Dosage: 95 MG, UNKNOWN
     Route: 048
  10. MIRTAZAPINE [Concomitant]
     Active Substance: MIRTAZAPINE
     Indication: Product used for unknown indication
     Dosage: 30 MG, UNKNOWN
     Route: 048
  11. SIMVASTATIN [Concomitant]
     Active Substance: SIMVASTATIN
     Indication: Product used for unknown indication
     Dosage: 40 MG, UNKNOWN
     Route: 048
  12. CLINDAMYCIN [Concomitant]
     Active Substance: CLINDAMYCIN
     Indication: Corynebacterium infection
     Dosage: 600 MG, UNKNOWN
     Route: 048
  13. PANTOPRAZOLE [Concomitant]
     Active Substance: PANTOPRAZOLE
     Indication: Product used for unknown indication
     Dosage: 20 MG, UNKNOWN
     Route: 048
  14. QUETIAPINE [Concomitant]
     Active Substance: QUETIAPINE
     Indication: Product used for unknown indication
     Dosage: 25 MG, UNKNOWN
     Route: 048
  15. CHOLECALCIFEROL [Concomitant]
     Active Substance: CHOLECALCIFEROL
     Indication: Product used for unknown indication
     Dosage: 25.000 IU, QW
     Route: 048
  16. PHENPROCOUMON [Concomitant]
     Active Substance: PHENPROCOUMON
     Indication: Anticoagulant therapy
     Dosage: UNK (DOSAGE ACCORDING TO COAGULATION STATUS)
     Route: 048
  17. CLONAZEPAM [Concomitant]
     Active Substance: CLONAZEPAM
     Indication: Seizure
     Dosage: 2 MG, UNKNOWN
     Route: 042
  18. CLONAZEPAM [Concomitant]
     Active Substance: CLONAZEPAM
     Dosage: RECEIVED TOTAL OF 4MG IN THREE INJECTIONS OF 1, 1 AND 2MG
     Route: 042

REACTIONS (2)
  - Toxicity to various agents [Recovered/Resolved]
  - Drug interaction [Unknown]

NARRATIVE: CASE EVENT DATE: 20170101
